FAERS Safety Report 26206271 (Version 1)
Quarter: 2025Q4

REPORT INFORMATION
  Report Type: Report from Study
  Country: AR (occurrence: AR)
  Receive Date: 20251229
  Receipt Date: 20251229
  Transmission Date: 20260117
  Serious: Yes (Hospitalization)
  Sender: AMGEN
  Company Number: AR-AMGEN-ARGSL2025144458

PATIENT
  Age: 68 Year
  Sex: Male

DRUGS (2)
  1. VECTIBIX [Suspect]
     Active Substance: PANITUMUMAB
     Indication: Colorectal cancer
     Dosage: UNK
     Route: 065
     Dates: start: 20250707
  2. VECTIBIX [Suspect]
     Active Substance: PANITUMUMAB
     Dosage: UNK (A LIGHTER DOSE)
     Route: 065
     Dates: start: 20251113

REACTIONS (3)
  - Urinary tract infection [Unknown]
  - Cardiac disorder [Unknown]
  - Acne [Unknown]

NARRATIVE: CASE EVENT DATE: 20250101
